FAERS Safety Report 5356289-8 (Version None)
Quarter: 2007Q2

REPORT INFORMATION
  Report Type: 
  Country: None (occurrence: None)
  Receive Date: 20070613
  Receipt Date: 20070606
  Transmission Date: 20071010
  Serious: Yes (Hospitalization, Disabling, Other)
  Sender: FDA-Public Use
  Company Number: US-PURDUE-USA_2007_0027351

PATIENT
  Sex: Female
  Weight: 82 kg

DRUGS (9)
  1. OXYCONTIN [Suspect]
     Indication: PAIN
     Dosage: 180 MG, DAILY
     Dates: end: 20060401
  2. NEXIUM [Concomitant]
  3. SOMA [Concomitant]
  4. LUNESTA [Concomitant]
  5. MAXZIDE [Concomitant]
     Indication: HYPERTENSION
  6. ZYRTEC [Concomitant]
  7. SYNTHROID [Concomitant]
  8. LYRICA [Concomitant]
  9. PROPRANOLOL [Concomitant]

REACTIONS (27)
  - AGGRESSION [None]
  - AMNESIA [None]
  - ANGER [None]
  - BIPOLAR I DISORDER [None]
  - DELUSIONAL PERCEPTION [None]
  - DISCOMFORT [None]
  - DRUG DEPENDENCE [None]
  - DRUG WITHDRAWAL SYNDROME [None]
  - DYSPNOEA [None]
  - GENERAL PHYSICAL HEALTH DETERIORATION [None]
  - HOMICIDAL IDEATION [None]
  - IMPAIRED SELF-CARE [None]
  - INSOMNIA [None]
  - MENTAL DISORDER [None]
  - MENTAL IMPAIRMENT [None]
  - MOTOR DYSFUNCTION [None]
  - NIGHTMARE [None]
  - PAIN [None]
  - PERSONALITY CHANGE [None]
  - SOMNOLENCE [None]
  - SPEECH DISORDER [None]
  - SPOUSAL ABUSE [None]
  - SUICIDAL IDEATION [None]
  - THINKING ABNORMAL [None]
  - TOOTH LOSS [None]
  - TREMOR [None]
  - UNEVALUABLE EVENT [None]
